FAERS Safety Report 7040553-0 (Version None)
Quarter: 2010Q4

REPORT INFORMATION
  Report Type: 
  Country: None (occurrence: None)
  Receive Date: 20101006
  Receipt Date: 20100922
  Transmission Date: 20110411
  Serious: Yes (Hospitalization)
  Sender: FDA-Public Use
  Company Number: TPA2010A05109

PATIENT
  Sex: Male

DRUGS (7)
  1. ULORIC [Suspect]
     Indication: GOUT
     Dosage: 80 MG, 1 IN 1 D
     Dates: start: 20100726, end: 20100813
  2. SIMVASTATIN [Suspect]
     Dosage: 20 MG, 1 IN 1 D
  3. LISINOPRIL [Concomitant]
  4. METOPROLOL SUCCINATE [Concomitant]
  5. SPIRIVA [Concomitant]
  6. BUMEX [Concomitant]
  7. COLCHICINE [Concomitant]

REACTIONS (4)
  - HEPATIC FAILURE [None]
  - INCORRECT DRUG ADMINISTRATION DURATION [None]
  - RENAL FAILURE ACUTE [None]
  - RHABDOMYOLYSIS [None]
